FAERS Safety Report 23556362 (Version 1)
Quarter: 2024Q1

REPORT INFORMATION
  Report Type: Spontaneous
  Country: DE (occurrence: DE)
  Receive Date: 20240223
  Receipt Date: 20240223
  Transmission Date: 20240410
  Serious: Yes (Hospitalization, Other)
  Sender: FDA-Public Use
  Company Number: DE-ALKEM LABORATORIES LIMITED-DE-ALKEM-2024-02712

PATIENT
  Age: 71 Year
  Sex: Male
  Weight: 70 kg

DRUGS (14)
  1. EZETIMIBE [Suspect]
     Active Substance: EZETIMIBE
     Indication: Product used for unknown indication
     Dosage: 10 MILLIGRAM, TABLET
     Route: 048
  2. EZETIMIBE [Suspect]
     Active Substance: EZETIMIBE
     Dosage: 20 MILLIGRAM, QD, TABLET
     Route: 048
     Dates: start: 20240204, end: 20240204
  3. METFORMIN HYDROCHLORIDE [Suspect]
     Active Substance: METFORMIN HYDROCHLORIDE
     Indication: Product used for unknown indication
     Dosage: 1700 MILLIGRAM, QD, FILM-COATED TABLET
     Route: 048
     Dates: start: 20240204, end: 20240204
  4. METFORMIN HYDROCHLORIDE [Suspect]
     Active Substance: METFORMIN HYDROCHLORIDE
     Dosage: 850 MILLIGRAM, FILM-COATED TABLET
     Route: 048
  5. RIVAROXABAN [Suspect]
     Active Substance: RIVAROXABAN
     Indication: Product used for unknown indication
     Dosage: 20 MILLIGRAM, FILM-COATED TABLET
     Route: 048
  6. RIVAROXABAN [Suspect]
     Active Substance: RIVAROXABAN
     Dosage: 40 MILLIGRAM, QD, FILM-COATED TABLET
     Route: 048
     Dates: start: 20240204, end: 20240204
  7. SITAGLIPTIN [Suspect]
     Active Substance: SITAGLIPTIN
     Indication: Product used for unknown indication
     Dosage: 50 MILLIGRAM, FILM-COATED TABLET
     Route: 048
  8. SITAGLIPTIN [Suspect]
     Active Substance: SITAGLIPTIN
     Dosage: 100 MILLIGRAM, QD, FILM-COATED TABLET
     Route: 048
     Dates: start: 20240204, end: 20240204
  9. CARBIDOPA\LEVODOPA [Suspect]
     Active Substance: CARBIDOPA\LEVODOPA
     Indication: Product used for unknown indication
     Dosage: 1 DOSAGE FORM
     Route: 048
  10. CARBIDOPA\LEVODOPA [Suspect]
     Active Substance: CARBIDOPA\LEVODOPA
     Dosage: 2 DOSAGE FORM, QD
     Route: 048
     Dates: start: 20240204, end: 20240204
  11. PRUCALOPRIDE [Suspect]
     Active Substance: PRUCALOPRIDE
     Indication: Product used for unknown indication
     Dosage: 2 MILLIGRAM
     Route: 048
  12. PRUCALOPRIDE [Suspect]
     Active Substance: PRUCALOPRIDE
     Dosage: 4 MILLIGRAM, QD
     Route: 048
     Dates: start: 20240204, end: 20240204
  13. XADAGO [Suspect]
     Active Substance: SAFINAMIDE MESYLATE
     Indication: Product used for unknown indication
     Dosage: 100 MILLIGRAM, QD
     Route: 048
     Dates: start: 20240204, end: 20240204
  14. XADAGO [Suspect]
     Active Substance: SAFINAMIDE MESYLATE
     Dosage: 50 MILLIGRAM
     Route: 048

REACTIONS (5)
  - Delirium tremens [Recovering/Resolving]
  - Hallucination [Recovering/Resolving]
  - Tachycardia [Recovering/Resolving]
  - Disorientation [Recovering/Resolving]
  - Duplicate therapy error [Unknown]

NARRATIVE: CASE EVENT DATE: 20240204
